FAERS Safety Report 7949211-9 (Version None)
Quarter: 2011Q4

REPORT INFORMATION
  Report Type: 
  Country: None (occurrence: None)
  Receive Date: 20111130
  Receipt Date: 20110930
  Transmission Date: 20120403
  Serious: Yes (Other)
  Sender: FDA-Public Use
  Company Number: PHHY2011BR87764

PATIENT
  Sex: Female
  Weight: 78 kg

DRUGS (8)
  1. CAPTOPRIL [Suspect]
     Indication: HYPERTENSION
  2. ENALAPRIL MALEATE [Suspect]
     Indication: HYPERTENSION
  3. LOSARTAN POTASSIUM [Suspect]
     Indication: HYPERTENSION
  4. METHYLDOPA [Concomitant]
  5. PROPRANOLOL [Concomitant]
  6. NIFEDIPINE [Concomitant]
  7. ATENOLOL [Suspect]
     Indication: HYPERTENSION
  8. AMLODIPINE [Suspect]
     Indication: HYPERTENSION

REACTIONS (16)
  - RENAL IMPAIRMENT [None]
  - MYOCARDIAL ISCHAEMIA [None]
  - LEFT VENTRICULAR FAILURE [None]
  - DILATATION VENTRICULAR [None]
  - HEADACHE [None]
  - OEDEMA PERIPHERAL [None]
  - DYSPNOEA [None]
  - ORTHOPNOEA [None]
  - METABOLIC SYNDROME [None]
  - DIZZINESS [None]
  - PALPITATIONS [None]
  - ANGINA PECTORIS [None]
  - HYPERTENSION [None]
  - CHEST PAIN [None]
  - NAUSEA [None]
  - VOMITING [None]
